FAERS Safety Report 12419352 (Version 4)
Quarter: 2016Q4

REPORT INFORMATION
  Report Type: Report from Study
  Country: JP (occurrence: JP)
  Receive Date: 20160531
  Receipt Date: 20161014
  Transmission Date: 20170207
  Serious: Yes (Hospitalization)
  Sender: FDA-Public Use
  Company Number: JP-ASTELLAS-2009JP005825

PATIENT
  Age: 35 Year
  Sex: Female

DRUGS (64)
  1. PREDNISOLONE. [Suspect]
     Active Substance: PREDNISOLONE
     Route: 048
     Dates: start: 20090812, end: 20100105
  2. PREDNISOLONE. [Suspect]
     Active Substance: PREDNISOLONE
     Route: 048
     Dates: start: 20100725, end: 20100817
  3. PREDNISOLONE. [Suspect]
     Active Substance: PREDNISOLONE
     Route: 048
     Dates: start: 20100818, end: 20100907
  4. PREDNISOLONE. [Suspect]
     Active Substance: PREDNISOLONE
     Route: 048
     Dates: start: 20101201, end: 20110201
  5. PREDNISOLONE. [Suspect]
     Active Substance: PREDNISOLONE
     Route: 048
     Dates: start: 20110202, end: 20110524
  6. PREDNISOLONE. [Suspect]
     Active Substance: PREDNISOLONE
     Route: 048
     Dates: start: 20131002, end: 20131029
  7. FERROMIA [Concomitant]
     Active Substance: FERROUS CITRATE
     Indication: IRON DEFICIENCY ANAEMIA
     Route: 048
     Dates: end: 20090303
  8. PL [Concomitant]
     Active Substance: ACETAMINOPHEN\CAFFEINE\PROMETHAZINE\SALICYLAMIDE
     Indication: NASOPHARYNGITIS
     Route: 048
     Dates: start: 20081105, end: 20081209
  9. PL [Concomitant]
     Active Substance: ACETAMINOPHEN\CAFFEINE\PROMETHAZINE\SALICYLAMIDE
     Route: 048
     Dates: start: 20120612, end: 20120616
  10. ASTHPHYLLIN                        /00566201/ [Concomitant]
     Indication: NASOPHARYNGITIS
     Route: 048
     Dates: start: 20110920, end: 20110924
  11. BREDININ [Suspect]
     Active Substance: MIZORIBINE
     Indication: LUPUS NEPHRITIS
     Route: 048
     Dates: start: 20120912
  12. METHYCOBAL [Concomitant]
     Active Substance: METHYLCOBALAMIN
     Indication: NEUROPATHY PERIPHERAL
     Route: 048
     Dates: end: 20100712
  13. TOYOFAROL [Concomitant]
     Active Substance: ALFACALCIDOL
     Indication: PROPHYLAXIS
     Dosage: 0.25 ?G, ONCE DAILY
     Route: 048
  14. MIYA-BM [Concomitant]
     Active Substance: CLOSTRIDIUM BUTYRICUM SPORES STRAIN M-55
     Indication: DIARRHOEA
     Route: 048
     Dates: start: 20150812
  15. PREDNISOLONE. [Suspect]
     Active Substance: PREDNISOLONE
     Indication: LUPUS NEPHRITIS
     Route: 048
     Dates: end: 20090512
  16. PREDNISOLONE. [Suspect]
     Active Substance: PREDNISOLONE
     Route: 048
     Dates: start: 20100106, end: 20100712
  17. WARFARIN [Concomitant]
     Active Substance: WARFARIN
     Route: 048
     Dates: start: 20100717, end: 20140415
  18. PERSANTIN [Concomitant]
     Active Substance: DIPYRIDAMOLE
     Route: 048
     Dates: start: 20100717
  19. CALONAL [Concomitant]
     Active Substance: ACETAMINOPHEN
     Indication: HEADACHE
     Dosage: 1.5 G, WHEN THE PATIENT HAD HEADACHE
     Route: 048
     Dates: start: 20080604, end: 20080630
  20. PL [Concomitant]
     Active Substance: ACETAMINOPHEN\CAFFEINE\PROMETHAZINE\SALICYLAMIDE
     Route: 048
     Dates: start: 20110920, end: 20110924
  21. PL [Concomitant]
     Active Substance: ACETAMINOPHEN\CAFFEINE\PROMETHAZINE\SALICYLAMIDE
     Route: 048
     Dates: start: 20130212, end: 20130218
  22. SOLANTAL [Concomitant]
     Active Substance: TIARAMIDE
     Route: 048
     Dates: start: 20101130, end: 20101205
  23. NEGMIN [Concomitant]
     Indication: NASOPHARYNGITIS
     Dosage: APPROPRIATE DOSE
     Route: 061
     Dates: start: 20081105, end: 20090105
  24. TACROLIMUS. [Suspect]
     Active Substance: TACROLIMUS
     Indication: LUPUS NEPHRITIS
     Route: 048
     Dates: start: 20080501
  25. PREDNISOLONE. [Suspect]
     Active Substance: PREDNISOLONE
     Route: 048
     Dates: start: 20100908, end: 20101005
  26. PREDNISOLONE. [Suspect]
     Active Substance: PREDNISOLONE
     Route: 048
     Dates: start: 20110525, end: 20120710
  27. PREDNISOLONE. [Suspect]
     Active Substance: PREDNISOLONE
     Route: 048
     Dates: start: 20120711, end: 20130903
  28. PREDNISOLONE. [Suspect]
     Active Substance: PREDNISOLONE
     Route: 048
     Dates: start: 20130904, end: 20131001
  29. PROCYLIN [Concomitant]
     Active Substance: BERAPROST SODIUM
     Route: 048
     Dates: start: 20100717
  30. PERSANTIN [Concomitant]
     Active Substance: DIPYRIDAMOLE
     Indication: LUPUS NEPHRITIS
     Route: 048
     Dates: end: 20100712
  31. SOLANTAL [Concomitant]
     Active Substance: TIARAMIDE
     Route: 048
     Dates: start: 20120612, end: 20120616
  32. PREDNISOLONE. [Suspect]
     Active Substance: PREDNISOLONE
     Route: 048
     Dates: start: 20090513, end: 20090811
  33. BLOSTAR M [Concomitant]
     Indication: PROPHYLAXIS
     Route: 048
     Dates: end: 20100712
  34. BLOSTAR M [Concomitant]
     Route: 048
     Dates: start: 20100718, end: 20151221
  35. WARFARIN [Concomitant]
     Active Substance: WARFARIN
     Indication: PROPHYLAXIS
     Route: 048
     Dates: end: 20100712
  36. FERROMIA [Concomitant]
     Active Substance: FERROUS CITRATE
     Route: 048
     Dates: start: 20100717, end: 20100723
  37. PL [Concomitant]
     Active Substance: ACETAMINOPHEN\CAFFEINE\PROMETHAZINE\SALICYLAMIDE
     Route: 048
     Dates: start: 20100724, end: 20100728
  38. SOLANTAL [Concomitant]
     Active Substance: TIARAMIDE
     Indication: NASOPHARYNGITIS
     Route: 048
     Dates: start: 20081105, end: 20081209
  39. SOLANTAL [Concomitant]
     Active Substance: TIARAMIDE
     Route: 048
     Dates: start: 20091106, end: 20091112
  40. PREDNISOLONE. [Suspect]
     Active Substance: PREDNISOLONE
     Route: 048
     Dates: start: 20100718, end: 20100724
  41. SELBEX [Concomitant]
     Active Substance: TEPRENONE
     Route: 048
     Dates: start: 20100721
  42. FERROMIA [Concomitant]
     Active Substance: FERROUS CITRATE
     Route: 048
     Dates: start: 20100303, end: 20100712
  43. PL [Concomitant]
     Active Substance: ACETAMINOPHEN\CAFFEINE\PROMETHAZINE\SALICYLAMIDE
     Route: 048
     Dates: start: 20091106, end: 20091112
  44. NEGMIN [Concomitant]
     Dosage: APPROPRIATE DOSE
     Route: 061
     Dates: start: 20100331, end: 20100430
  45. OMEPRAZOLE. [Concomitant]
     Active Substance: OMEPRAZOLE
     Indication: PROPHYLAXIS
     Route: 048
     Dates: start: 20151222
  46. PREDNISOLONE. [Suspect]
     Active Substance: PREDNISOLONE
     Route: 048
     Dates: start: 20101006, end: 20101130
  47. PREDNISOLONE. [Suspect]
     Active Substance: PREDNISOLONE
     Route: 048
     Dates: start: 20160406
  48. WARFARIN [Concomitant]
     Active Substance: WARFARIN
     Route: 048
     Dates: start: 20140416
  49. SELBEX [Concomitant]
     Active Substance: TEPRENONE
     Indication: PROPHYLAXIS
     Route: 048
     Dates: end: 20100712
  50. PL [Concomitant]
     Active Substance: ACETAMINOPHEN\CAFFEINE\PROMETHAZINE\SALICYLAMIDE
     Route: 048
     Dates: start: 20130115, end: 20130119
  51. SOLANTAL [Concomitant]
     Active Substance: TIARAMIDE
     Route: 048
     Dates: start: 20100331, end: 20100406
  52. SOLANTAL [Concomitant]
     Active Substance: TIARAMIDE
     Route: 048
     Dates: start: 20100724, end: 20100728
  53. SOLANTAL [Concomitant]
     Active Substance: TIARAMIDE
     Route: 048
     Dates: start: 20110301, end: 20110308
  54. LAC-B [Concomitant]
     Active Substance: BIFIDOBACTERIUM SPP.
     Indication: ABDOMINAL PAIN
     Route: 048
     Dates: start: 20120313, end: 20120326
  55. LAC-B [Concomitant]
     Active Substance: BIFIDOBACTERIUM SPP.
     Indication: DIARRHOEA
  56. PREDNISOLONE. [Suspect]
     Active Substance: PREDNISOLONE
     Route: 048
     Dates: start: 20131030, end: 20160405
  57. PREDONINE [Concomitant]
     Active Substance: PREDNISOLONE\PREDNISOLONE ACETATE\PREDNISOLONE SODIUM SUCCINATE
     Indication: LUPUS NEPHRITIS
     Route: 065
     Dates: start: 20100713, end: 20100717
  58. PROCYLIN [Concomitant]
     Active Substance: BERAPROST SODIUM
     Indication: LUPUS NEPHRITIS
     Route: 048
     Dates: end: 20100712
  59. PL [Concomitant]
     Active Substance: ACETAMINOPHEN\CAFFEINE\PROMETHAZINE\SALICYLAMIDE
     Route: 048
     Dates: start: 20100331, end: 20100406
  60. PL [Concomitant]
     Active Substance: ACETAMINOPHEN\CAFFEINE\PROMETHAZINE\SALICYLAMIDE
     Route: 048
     Dates: start: 20101130, end: 20101205
  61. PL [Concomitant]
     Active Substance: ACETAMINOPHEN\CAFFEINE\PROMETHAZINE\SALICYLAMIDE
     Route: 048
     Dates: start: 20110301, end: 20110308
  62. SOLANTAL [Concomitant]
     Active Substance: TIARAMIDE
     Route: 048
     Dates: start: 20130115, end: 20130119
  63. SOLANTAL [Concomitant]
     Active Substance: TIARAMIDE
     Route: 048
     Dates: start: 20130212, end: 20130218
  64. NEGMIN [Concomitant]
     Dosage: APPROPRIATE DOSE
     Route: 061
     Dates: start: 20091106, end: 20091201

REACTIONS (8)
  - Headache [Recovered/Resolved]
  - Diarrhoea [Recovering/Resolving]
  - Nasopharyngitis [Recovered/Resolved]
  - Nasopharyngitis [Recovered/Resolved]
  - Pneumonia bacterial [Recovered/Resolved]
  - Henoch-Schonlein purpura [Recovered/Resolved]
  - Diarrhoea [Recovered/Resolved]
  - Abdominal pain [Recovered/Resolved]

NARRATIVE: CASE EVENT DATE: 20080603
